FAERS Safety Report 11116336 (Version 1)
Quarter: 2015Q2

REPORT INFORMATION
  Report Type: Spontaneous
  Country: GR (occurrence: GR)
  Receive Date: 20150515
  Receipt Date: 20150515
  Transmission Date: 20150821
  Serious: Yes (Other)
  Sender: FDA-Public Use
  Company Number: GR-BAYER-2015-203008

PATIENT
  Age: 52 Year
  Sex: Male

DRUGS (1)
  1. INTERFERON BETA - 1B [Suspect]
     Active Substance: INTERFERON BETA-1B
     Indication: RELAPSING-REMITTING MULTIPLE SCLEROSIS
     Dosage: UNK
     Dates: start: 2008, end: 2012

REACTIONS (9)
  - Neuroendocrine carcinoma [None]
  - Cerebellar syndrome [None]
  - Cognitive disorder [None]
  - Paraparesis [None]
  - Gait spastic [None]
  - Ataxia [None]
  - Muscle atrophy [None]
  - Cervical spinal stenosis [None]
  - Hyperreflexia [None]

NARRATIVE: CASE EVENT DATE: 2008
